FAERS Safety Report 21036355 (Version 1)
Quarter: 2022Q3

REPORT INFORMATION
  Report Type: Spontaneous
  Country: NL (occurrence: NL)
  Receive Date: 20220702
  Receipt Date: 20220702
  Transmission Date: 20221026
  Serious: Yes (Hospitalization, Other)
  Sender: FDA-Public Use
  Company Number: NL-NAPPMUNDI-GBR-2022-0099010

PATIENT
  Sex: Male

DRUGS (2)
  1. OXYCODONE [Suspect]
     Active Substance: OXYCODONE
     Indication: Back pain
     Dosage: UNK
     Route: 048
     Dates: start: 2017
  2. OXYCODONE [Suspect]
     Active Substance: OXYCODONE
     Dosage: UNK (DOUBLED DOSE)
     Route: 048

REACTIONS (7)
  - Insomnia [Recovered/Resolved]
  - Intentional self-injury [Recovered/Resolved]
  - Drug dependence [Recovered/Resolved]
  - Depression [Recovered/Resolved]
  - Drug withdrawal syndrome [Recovered/Resolved]
  - Inadequate analgesia [Recovered/Resolved]
  - Sleep apnoea syndrome [Unknown]

NARRATIVE: CASE EVENT DATE: 20170101
